FAERS Safety Report 24085300 (Version 1)
Quarter: 2024Q3

REPORT INFORMATION
  Report Type: Spontaneous
  Country: US (occurrence: US)
  Receive Date: 20240712
  Receipt Date: 20240712
  Transmission Date: 20241016
  Serious: No
  Sender: PERRIGO
  Company Number: US-PERRIGO-23US008825

PATIENT
  Sex: Male

DRUGS (2)
  1. IBUPROFEN [Suspect]
     Active Substance: IBUPROFEN
     Indication: Exposure via breast milk
     Dosage: UNK, UNK
     Route: 048
     Dates: start: 20230726, end: 20230726
  2. ACETAMINOPHEN [Suspect]
     Active Substance: ACETAMINOPHEN
     Indication: Exposure via breast milk
     Dosage: UNK, UNK
     Route: 048
     Dates: start: 20230726, end: 20230726

REACTIONS (5)
  - Crying [Unknown]
  - Abdominal discomfort [Unknown]
  - Opisthotonus [Unknown]
  - Hypersensitivity [Unknown]
  - Exposure via breast milk [Unknown]

NARRATIVE: CASE EVENT DATE: 20230726
